FAERS Safety Report 11533651 (Version 1)
Quarter: 2015Q3

REPORT INFORMATION
  Report Type: Spontaneous
  Country: US (occurrence: US)
  Receive Date: 20150921
  Receipt Date: 20150921
  Transmission Date: 20151125
  Serious: No
  Sender: FDA-Public Use
  Company Number: US-SIGMA-TAU US-2015STPI000336

PATIENT
  Age: 41 Year
  Sex: Female

DRUGS (1)
  1. MATULANE [Suspect]
     Active Substance: PROCARBAZINE HYDROCHLORIDE
     Indication: HODGKIN^S DISEASE

REACTIONS (3)
  - Anxiety [Recovered/Resolved]
  - Constipation [Recovered/Resolved]
  - Insomnia [Recovered/Resolved]

NARRATIVE: CASE EVENT DATE: 20150507
